FAERS Safety Report 8422374-7 (Version None)
Quarter: 2012Q2

REPORT INFORMATION
  Report Type: 
  Country: None (occurrence: None)
  Receive Date: 20120608
  Receipt Date: 20120525
  Transmission Date: 20120825
  Serious: Yes (Life-Threatening, Hospitalization, Other)
  Sender: FDA-Public Use
  Company Number: US-MYLANLABS-2009AC000361

PATIENT
  Age: 75 Year
  Sex: Female
  Weight: 72.58 kg

DRUGS (67)
  1. DIGOXIN [Suspect]
     Indication: HYPERTENSION
     Dosage: DOSE UNIT:
     Route: 048
     Dates: start: 20080124, end: 20080403
  2. DIGOXIN [Suspect]
     Indication: ATRIAL FIBRILLATION
     Dosage: DOSE UNIT:
     Route: 048
     Dates: start: 20080124, end: 20080403
  3. SYNTHROID [Concomitant]
  4. VALIUM [Concomitant]
  5. ACETAMINOPHEN [Concomitant]
  6. NITROFURANTOIN [Concomitant]
  7. MAGNESIUM [Concomitant]
  8. LACTULOSE [Concomitant]
  9. DARVOCET [Concomitant]
  10. ASPIRIN [Concomitant]
  11. LOPRESSOR [Concomitant]
  12. COUMADIN [Concomitant]
  13. PRILOSEC [Concomitant]
  14. REGLAN [Concomitant]
  15. MUCINEX [Concomitant]
  16. NEXIUM [Concomitant]
  17. LEVAQUIN [Concomitant]
  18. ZOSYN [Concomitant]
  19. NYSTATIN [Concomitant]
  20. CORDARONE [Concomitant]
  21. OYST-CAL [Concomitant]
  22. SENNA LAX [Concomitant]
  23. MULTI-VITAMINS [Concomitant]
  24. POTASSIUM [Concomitant]
  25. ONDANSETRON [Concomitant]
  26. PROTONIX [Concomitant]
  27. DIGOXIN [Suspect]
     Indication: CARDIAC FAILURE CONGESTIVE
     Dosage: DOSE UNIT:
     Route: 048
     Dates: start: 20080124, end: 20080403
  28. CIPROFLOXACIN HCL [Concomitant]
  29. DILTIAZEM [Concomitant]
  30. ZINC SULFATE [Concomitant]
  31. DUONEB [Concomitant]
  32. METOCLOPRAMIDE [Concomitant]
  33. NYSTATIN [Concomitant]
  34. LORTAB [Concomitant]
  35. HYDROCODONE [Concomitant]
  36. PRILOSEC [Concomitant]
  37. LISINOPRIL [Concomitant]
  38. DICLOXACILLIN [Concomitant]
  39. PANTOPRAZOLE [Concomitant]
  40. DOCUSATE [Concomitant]
  41. LEVAQUIN [Concomitant]
  42. CLARITIN /00917501/ [Concomitant]
  43. BACTRIM [Concomitant]
  44. LOPERAMIDE [Concomitant]
  45. NAPROXEN [Concomitant]
  46. RISPERDAL [Concomitant]
  47. ASPIRIN [Concomitant]
  48. DETROL [Concomitant]
  49. LEVOTHYROXINE SODIUM [Concomitant]
  50. CEPHALEXIN [Concomitant]
  51. PROMETHAZINE [Concomitant]
  52. MUCINEX [Concomitant]
  53. PROPOXYPHENE NAPSYLATE [Concomitant]
  54. ALMACONE [Concomitant]
  55. JANTOVEN [Concomitant]
  56. FUROSEMIDE [Concomitant]
  57. LIPITOR [Concomitant]
  58. CELEXA [Concomitant]
  59. MIRALAX /00754501/ [Concomitant]
  60. LOPRESSOR [Concomitant]
  61. DIAZEPAM [Concomitant]
  62. ASCORBIC ACID [Concomitant]
  63. SERTRALINE HYDROCHLORIDE [Concomitant]
  64. NITROGLYCERIN [Concomitant]
  65. AMIODARONE HCL [Concomitant]
  66. PACERONE [Concomitant]
  67. LORCET-HD [Concomitant]

REACTIONS (95)
  - ILL-DEFINED DISORDER [None]
  - URINARY INCONTINENCE [None]
  - KYPHOSIS [None]
  - NEPHRECTOMY [None]
  - HYPERTENSION [None]
  - ELECTROCARDIOGRAM ABNORMAL [None]
  - FALL [None]
  - TRANSFUSION [None]
  - PAIN [None]
  - GENERAL PHYSICAL CONDITION ABNORMAL [None]
  - MUSCULAR WEAKNESS [None]
  - MYOCARDIAL INFARCTION [None]
  - CHRONIC OBSTRUCTIVE PULMONARY DISEASE [None]
  - ANAEMIA [None]
  - ATRIAL FIBRILLATION [None]
  - PNEUMONIA [None]
  - HAEMOPTYSIS [None]
  - PULMONARY HYPERTENSION [None]
  - VENTRICULAR FIBRILLATION [None]
  - BRONCHITIS [None]
  - DEHYDRATION [None]
  - HYPOKALAEMIA [None]
  - JOINT RANGE OF MOTION DECREASED [None]
  - RECTAL HAEMORRHAGE [None]
  - FRACTURE [None]
  - CARDIAC ARREST [None]
  - HYPOTHYROIDISM [None]
  - CORONARY ARTERY DISEASE [None]
  - OSTEOPOROSIS [None]
  - LARYNGECTOMY [None]
  - CARDIOMYOPATHY [None]
  - HYPOXIA [None]
  - ANXIETY [None]
  - CORONARY ARTERIAL STENT INSERTION [None]
  - HYPONATRAEMIA [None]
  - OSTEOPENIA [None]
  - CONJUNCTIVITIS [None]
  - FEMUR FRACTURE [None]
  - SEPTIC SHOCK [None]
  - ECHOCARDIOGRAM ABNORMAL [None]
  - WHEEZING [None]
  - ATRIOVENTRICULAR BLOCK COMPLETE [None]
  - CONSTIPATION [None]
  - HYPOTENSION [None]
  - ILEUS [None]
  - PERICARDIAL EFFUSION [None]
  - VENTRICULAR TACHYCARDIA [None]
  - ABDOMINAL TENDERNESS [None]
  - COMPUTERISED TOMOGRAM ABNORMAL [None]
  - DEPRESSION [None]
  - HYPOVOLAEMIA [None]
  - PALPITATIONS [None]
  - SKIN CANCER [None]
  - HOSPITALISATION [None]
  - ECONOMIC PROBLEM [None]
  - GASTRITIS [None]
  - BLEPHARITIS [None]
  - PAIN IN EXTREMITY [None]
  - DYSLIPIDAEMIA [None]
  - ABDOMINAL PAIN [None]
  - CHEST PAIN [None]
  - AORTIC ANEURYSM [None]
  - HEPATIC CYST [None]
  - JOINT EFFUSION [None]
  - NAUSEA [None]
  - PNEUMOPERITONEUM [None]
  - PYREXIA [None]
  - RENAL CYST [None]
  - RHONCHI [None]
  - FEAR [None]
  - MENTAL STATUS CHANGES [None]
  - CARDIAC PACEMAKER INSERTION [None]
  - BRADYCARDIA [None]
  - JOINT DISLOCATION [None]
  - GASTROOESOPHAGEAL REFLUX DISEASE [None]
  - LABORATORY TEST ABNORMAL [None]
  - CARDIAC VALVE DISEASE [None]
  - RENAL CELL CARCINOMA [None]
  - ARTERIOSCLEROSIS [None]
  - ARTHRALGIA [None]
  - IMPAIRED GASTRIC EMPTYING [None]
  - LOCAL SWELLING [None]
  - NUCLEAR MAGNETIC RESONANCE IMAGING ABNORMAL [None]
  - OESOPHAGEAL CANDIDIASIS [None]
  - INJURY [None]
  - EMOTIONAL DISTRESS [None]
  - OESOPHAGITIS [None]
  - TOXICITY TO VARIOUS AGENTS [None]
  - GASTROINTESTINAL HAEMORRHAGE [None]
  - CARDIAC FAILURE CONGESTIVE [None]
  - TACHYCARDIA [None]
  - CARDIOVERSION [None]
  - HAEMARTHROSIS [None]
  - TIBIA FRACTURE [None]
  - X-RAY ABNORMAL [None]
